FAERS Safety Report 5939475-5 (Version None)
Quarter: 2008Q4

REPORT INFORMATION
  Report Type: 
  Country: None (occurrence: None)
  Receive Date: 20081103
  Receipt Date: 20081027
  Transmission Date: 20090506
  Serious: Yes (Other)
  Sender: FDA-Public Use
  Company Number: JP-ALLERGAN-0805823US

PATIENT
  Sex: Female

DRUGS (1)
  1. BOTOX [Suspect]
     Indication: SPASTIC DIPLEGIA
     Dosage: 100 UNITS, SINGLE
     Route: 030

REACTIONS (1)
  - ANAESTHESIA [None]
